FAERS Safety Report 15116833 (Version 1)
Quarter: 2018Q3

REPORT INFORMATION
  Report Type: Spontaneous
  Country: US (occurrence: US)
  Receive Date: 20180612
  Receipt Date: 20180612
  Transmission Date: 20181010
  Serious: Yes (Hospitalization)
  Sender: FDA-Public Use
  Company Number: None

PATIENT
  Age: 87 Year
  Sex: Male
  Weight: 89.81 kg

DRUGS (1)
  1. VOTRIENT [Suspect]
     Active Substance: PAZOPANIB HYDROCHLORIDE
     Indication: RENAL CANCER
     Route: 048
     Dates: start: 20180524

REACTIONS (6)
  - Infection [None]
  - Confusional state [None]
  - Cerebrovascular accident [None]
  - Agitation [None]
  - Dysphagia [None]
  - Amnesia [None]

NARRATIVE: CASE EVENT DATE: 20180607
